FAERS Safety Report 18943874 (Version 1)
Quarter: 2021Q1

REPORT INFORMATION
  Report Type: Spontaneous
  Country: US (occurrence: US)
  Receive Date: 20210225
  Receipt Date: 20210225
  Transmission Date: 20210420
  Serious: Yes (Other)
  Sender: FDA-Public Use
  Company Number: None

PATIENT
  Age: 46 Year
  Sex: Female
  Weight: 58.5 kg

DRUGS (3)
  1. MAGNESIUM [Concomitant]
     Active Substance: MAGNESIUM
  2. CIPRO [Suspect]
     Active Substance: CIPROFLOXACIN HYDROCHLORIDE
     Indication: URINARY TRACT INFECTION
     Route: 048
     Dates: start: 20210204, end: 20210207
  3. LEVITHRYROXINE [Concomitant]

REACTIONS (4)
  - Arthralgia [None]
  - Limb discomfort [None]
  - Eye pain [None]
  - Myalgia [None]

NARRATIVE: CASE EVENT DATE: 20210205
